FAERS Safety Report 17415077 (Version 1)
Quarter: 2020Q1

REPORT INFORMATION
  Report Type: Spontaneous
  Country: US (occurrence: US)
  Receive Date: 20200213
  Receipt Date: 20200213
  Transmission Date: 20200409
  Serious: Yes (Life-Threatening)
  Sender: FDA-Public Use
  Company Number: US-ROCHE-2548117

PATIENT
  Sex: Female
  Weight: 65.83 kg

DRUGS (1)
  1. ACTEMRA [Suspect]
     Active Substance: TOCILIZUMAB
     Indication: TEMPORAL ARTERITIS
     Dosage: STRENGTH: 162MG/0.9ML
     Route: 058
     Dates: start: 20191011, end: 20200107

REACTIONS (2)
  - Colitis [Recovering/Resolving]
  - Sepsis [Recovering/Resolving]
